FAERS Safety Report 21960808 (Version 1)
Quarter: 2023Q1

REPORT INFORMATION
  Report Type: Report from Study
  Country: None (occurrence: IR)
  Receive Date: 20230207
  Receipt Date: 20230207
  Transmission Date: 20230418
  Serious: Yes (Death, Hospitalization, Other)
  Sender: FDA-Public Use
  Company Number: IR-Oxford Pharmaceuticals, LLC-2137586

PATIENT
  Age: 34 Year
  Sex: Female

DRUGS (2)
  1. ALPRAZOLAM [Suspect]
     Active Substance: ALPRAZOLAM
     Indication: Product used for unknown indication
  2. WARFARIN [Suspect]
     Active Substance: WARFARIN

REACTIONS (3)
  - Toxicity to various agents [Fatal]
  - Loss of consciousness [Fatal]
  - Intentional overdose [Fatal]
